FAERS Safety Report 5634171-6 (Version None)
Quarter: 2008Q1

REPORT INFORMATION
  Report Type: 
  Country: None (occurrence: None)
  Receive Date: 20080219
  Receipt Date: 20080205
  Transmission Date: 20080703
  Serious: Yes (Other)
  Sender: FDA-Public Use
  Company Number: OSCN-NO-0802S-0067

PATIENT
  Sex: Male

DRUGS (1)
  1. OMNISCAN [Suspect]
     Indication: METASTATIC NEOPLASM
     Dosage: I.V.
     Route: 042
     Dates: start: 20040901, end: 20051001

REACTIONS (1)
  - NEPHROGENIC SYSTEMIC FIBROSIS [None]
